FAERS Safety Report 12413733 (Version 1)
Quarter: 2016Q2

REPORT INFORMATION
  Report Type: Spontaneous
  Country: US (occurrence: US)
  Receive Date: 20160527
  Receipt Date: 20160527
  Transmission Date: 20160815
  Serious: No
  Sender: FDA-Public Use
  Company Number: US-SUPERNUS PHARMACEUTICALS, INC.-2016SUP00035

PATIENT
  Age: 46 Year
  Sex: Female

DRUGS (1)
  1. TROKENDI XR [Suspect]
     Active Substance: TOPIRAMATE
     Indication: SEIZURE
     Dosage: 100 MG, UNK
     Route: 048
     Dates: start: 201512

REACTIONS (5)
  - Paraesthesia [Unknown]
  - Fatigue [Unknown]
  - Dysgeusia [Unknown]
  - Mood altered [Unknown]
  - Somnolence [Unknown]
